FAERS Safety Report 14255687 (Version 5)
Quarter: 2018Q1

REPORT INFORMATION
  Report Type: Report from Study
  Country: US (occurrence: US)
  Receive Date: 20171206
  Receipt Date: 20180105
  Transmission Date: 20180508
  Serious: Yes (Hospitalization, Other)
  Sender: FDA-Public Use
  Company Number: US-GILEAD-2017-0308675

PATIENT
  Age: 59 Year
  Sex: Female
  Weight: 52.61 kg

DRUGS (12)
  1. AMBRISENTAN [Suspect]
     Active Substance: AMBRISENTAN
     Indication: PRODUCT USED FOR UNKNOWN INDICATION
     Dosage: 5 MG, QD
     Route: 065
     Dates: start: 20171013, end: 20171116
  2. ADCIRCA [Concomitant]
     Active Substance: TADALAFIL
  3. LOTRIMIN [Concomitant]
     Active Substance: CLOTRIMAZOLE
  4. MAG-OX [Concomitant]
     Active Substance: MAGNESIUM OXIDE
  5. CELLCEPT [Concomitant]
     Active Substance: MYCOPHENOLATE MOFETIL\MYCOPHENOLATE MOFETIL HYDROCHLORIDE
  6. ZOFRAN [Concomitant]
     Active Substance: ONDANSETRON HYDROCHLORIDE
  7. MEDROL [Concomitant]
     Active Substance: METHYLPREDNISOLONE
  8. BUMEX [Concomitant]
     Active Substance: BUMETANIDE
  9. LASIX [Concomitant]
     Active Substance: FUROSEMIDE
  10. OXYGEN. [Concomitant]
     Active Substance: OXYGEN
  11. VELETRI [Concomitant]
     Active Substance: EPOPROSTENOL
  12. EPOPROSTENOL. [Concomitant]
     Active Substance: EPOPROSTENOL

REACTIONS (7)
  - Headache [Not Recovered/Not Resolved]
  - Pulmonary arterial hypertension [Unknown]
  - Oedema peripheral [Recovering/Resolving]
  - Pain in jaw [Not Recovered/Not Resolved]
  - Arthralgia [Not Recovered/Not Resolved]
  - Ear discomfort [Not Recovered/Not Resolved]
  - Dyspnoea [Recovering/Resolving]
